FAERS Safety Report 9321109 (Version 2)
Quarter: 2013Q3

REPORT INFORMATION
  Report Type: Spontaneous
  Country: US (occurrence: US)
  Receive Date: 20130531
  Receipt Date: 20130730
  Transmission Date: 20140515
  Serious: Yes (Other)
  Sender: FDA-Public Use
  Company Number: US-ELI_LILLY_AND_COMPANY-US201305006698

PATIENT
  Sex: Male

DRUGS (1)
  1. PROZAC [Suspect]
     Dosage: 60 MG, QD

REACTIONS (1)
  - Weight increased [Not Recovered/Not Resolved]
